FAERS Safety Report 10010471 (Version 1)
Quarter: 2014Q1

REPORT INFORMATION
  Report Type: Spontaneous
  Country: US (occurrence: US)
  Receive Date: 20140314
  Receipt Date: 20140314
  Transmission Date: 20141002
  Serious: No
  Sender: FDA-Public Use
  Company Number: US-BIOGENIDEC-2014BI023496

PATIENT
  Sex: Female

DRUGS (9)
  1. AVONEX [Suspect]
     Indication: MULTIPLE SCLEROSIS
     Route: 030
  2. AMITRIPTYLINE [Concomitant]
  3. ASPIRIN [Concomitant]
  4. CALCIUM-VITAMIN D [Concomitant]
  5. CLONAZEPAM [Concomitant]
  6. FUROSEMIDE [Concomitant]
  7. HYDROCODONE-ACETAMINOPHEN. [Concomitant]
  8. IBUPROFEN [Concomitant]
  9. VITAMIN D [Concomitant]

REACTIONS (2)
  - Adverse event [Unknown]
  - Fatigue [Unknown]
